FAERS Safety Report 8238666-0 (Version None)
Quarter: 2012Q1

REPORT INFORMATION
  Report Type: 
  Country: None (occurrence: None)
  Receive Date: 20120323
  Receipt Date: 20120312
  Transmission Date: 20120608
  Serious: Yes (Hospitalization, Other)
  Sender: FDA-Public Use
  Company Number: 2012SP012871

PATIENT
  Age: 49 Year
  Sex: Male
  Weight: 78 kg

DRUGS (10)
  1. HYDROXYUREA [Suspect]
     Indication: ESSENTIAL THROMBOCYTHAEMIA
     Dosage: ;QD;PO
     Route: 048
     Dates: start: 20060829
  2. INTERFERON ALFA-2B RECOMBINANT (INTERFERON LAFA-2B) [Suspect]
     Indication: ESSENTIAL THROMBOCYTHAEMIA
     Dosage: 1 MIU;;SC, 1.2 MIU,,SC, 1.5 MIU;;SC, 0.9 MIU,,
     Route: 058
     Dates: start: 20080108
  3. INTERFERON ALFA-2B RECOMBINANT (INTERFERON LAFA-2B) [Suspect]
     Indication: ESSENTIAL THROMBOCYTHAEMIA
     Dosage: 1 MIU;;SC, 1.2 MIU,,SC, 1.5 MIU;;SC, 0.9 MIU,,
     Route: 058
     Dates: start: 20081015
  4. INTERFERON ALFA-2B RECOMBINANT (INTERFERON LAFA-2B) [Suspect]
     Indication: ESSENTIAL THROMBOCYTHAEMIA
     Dosage: 1 MIU;;SC, 1.2 MIU,,SC, 1.5 MIU;;SC, 0.9 MIU,,
     Route: 058
     Dates: start: 20080504
  5. INTERFERON ALFA-2B RECOMBINANT (INTERFERON LAFA-2B) [Suspect]
     Indication: ESSENTIAL THROMBOCYTHAEMIA
     Dosage: 1 MIU;;SC, 1.2 MIU,,SC, 1.5 MIU;;SC, 0.9 MIU,,
     Route: 058
     Dates: start: 20050228, end: 20060807
  6. ANAGRELIDE HYDROCHLORIDE [Suspect]
     Indication: ESSENTIAL THROMBOCYTHAEMIA
     Dosage: 0.5 MG;BID;PO, 3 MG;QD,PO
     Route: 048
     Dates: start: 20081015
  7. ANAGRELIDE HYDROCHLORIDE [Suspect]
     Indication: ESSENTIAL THROMBOCYTHAEMIA
     Dosage: 0.5 MG;BID;PO, 3 MG;QD,PO
     Route: 048
     Dates: start: 20061120
  8. WARFARIN SODIUM [Suspect]
     Indication: ESSENTIAL THROMBOCYTHAEMIA
     Dosage: 5 MG; QD; PO
     Route: 048
     Dates: start: 20080411, end: 20110601
  9. ASPIRIN [Suspect]
     Indication: ESSENTIAL THROMBOCYTHAEMIA
     Dosage: 80 MG;QD;PO
     Route: 048
     Dates: start: 20050203
  10. IRBESARTAN [Concomitant]

REACTIONS (4)
  - HAEMORRHAGE [None]
  - ABDOMINAL PAIN [None]
  - OFF LABEL USE [None]
  - HAEMATOMA [None]
